FAERS Safety Report 18621001 (Version 1)
Quarter: 2020Q4

REPORT INFORMATION
  Report Type: Report from Study
  Country: None (occurrence: NL)
  Receive Date: 20201216
  Receipt Date: 20201216
  Transmission Date: 20210114
  Serious: Yes (Death)
  Sender: FDA-Public Use
  Company Number: NL-ABBVIE-20K-114-3693928-00

PATIENT
  Sex: Male

DRUGS (5)
  1. DUODOPA [Suspect]
     Active Substance: CARBIDOPA\LEVODOPA
     Dosage: MD: 8.5ML, CD: 4.3ML/H, ED: 1.0ML, CND: 2.2ML/H
     Route: 050
  2. RIVOTRIL [Concomitant]
     Active Substance: CLONAZEPAM
     Indication: SLEEP DISORDER
     Route: 048
     Dates: start: 20200201
  3. CLOZAPINE. [Concomitant]
     Active Substance: CLOZAPINE
     Indication: HALLUCINATION
  4. MACROGOL [Concomitant]
     Active Substance: POLYETHYLENE GLYCOLS
     Indication: ABNORMAL FAECES
  5. DUODOPA [Suspect]
     Active Substance: CARBIDOPA\LEVODOPA
     Indication: PARKINSON^S DISEASE
     Dosage: MD: 8.5ML, CD: 4.3ML/H, ED: 1.0ML, CND: 2.2ML/H
     Route: 050
     Dates: start: 20130903

REACTIONS (1)
  - Ileus [Fatal]

NARRATIVE: CASE EVENT DATE: 202012
